FAERS Safety Report 20550698 (Version 1)
Quarter: 2022Q1

REPORT INFORMATION
  Report Type: Spontaneous
  Country: US (occurrence: US)
  Receive Date: 20220304
  Receipt Date: 20220304
  Transmission Date: 20220423
  Serious: No
  Sender: FDA-Public Use
  Company Number: US-CIPLA LTD.-2021US04913

PATIENT

DRUGS (1)
  1. SERTRALINE [Suspect]
     Active Substance: SERTRALINE HYDROCHLORIDE
     Indication: Product used for unknown indication
     Dosage: 100 MILLIGRAM, QD (1 TABLET AT NIGHT)
     Route: 065

REACTIONS (3)
  - Terminal insomnia [Unknown]
  - Nervousness [Unknown]
  - Tremor [Unknown]

NARRATIVE: CASE EVENT DATE: 20210101
